FAERS Safety Report 13481949 (Version 3)
Quarter: 2018Q1

REPORT INFORMATION
  Report Type: Report from Study
  Country: US (occurrence: US)
  Receive Date: 20170424
  Receipt Date: 20180117
  Transmission Date: 20180508
  Serious: No
  Sender: FDA-Public Use
  Company Number: US-AMGEN-USASL2017050583

PATIENT
  Age: 51 Year
  Sex: Female

DRUGS (3)
  1. LOVASTATIN. [Concomitant]
     Active Substance: LOVASTATIN
     Dosage: UNK
  2. REPATHA [Suspect]
     Active Substance: EVOLOCUMAB
     Indication: BLOOD CHOLESTEROL INCREASED
     Dosage: 140 MG, Q2WK
     Route: 065
  3. ZETIA [Concomitant]
     Active Substance: EZETIMIBE
     Dosage: UNK

REACTIONS (3)
  - Nausea [Unknown]
  - Pain [Unknown]
  - Therapy non-responder [Unknown]
